FAERS Safety Report 9512034 (Version 1)
Quarter: 2013Q3

REPORT INFORMATION
  Report Type: Spontaneous
  Country: BR (occurrence: BR)
  Receive Date: 20130910
  Receipt Date: 20130910
  Transmission Date: 20140515
  Serious: Yes (Death)
  Sender: FDA-Public Use
  Company Number: BR-PFIZER INC-2013259331

PATIENT
  Age: 69 Year
  Sex: Male
  Weight: 83 kg

DRUGS (1)
  1. LYRICA [Suspect]
     Indication: RENAL DISORDER
     Dosage: 75 MG, 1X/DAY (1 CAPSULE DAILY)

REACTIONS (2)
  - Off label use [Fatal]
  - Renal failure [Fatal]
